FAERS Safety Report 6153116-6 (Version None)
Quarter: 2009Q2

REPORT INFORMATION
  Report Type: 
  Country: None (occurrence: None)
  Receive Date: 20090413
  Receipt Date: 20090406
  Transmission Date: 20091009
  Serious: Yes (Other)
  Sender: FDA-Public Use
  Company Number: US-ELI_LILLY_AND_COMPANY-US200812006135

PATIENT
  Sex: Female
  Weight: 86.168 kg

DRUGS (14)
  1. HUMALOG [Suspect]
     Dosage: UNK, UNK
  2. LANOXIN [Concomitant]
     Dosage: 250 UG, DAILY (1/D)
     Route: 048
  3. IMDUR [Concomitant]
     Dosage: 30 MG, DAILY (1/D)
     Route: 048
  4. LASIX [Concomitant]
     Dosage: 80 MG, 2/D
     Route: 048
  5. ACCUPRIL [Concomitant]
     Dosage: 40 MG, UNK
     Route: 048
  6. ASPIRIN [Concomitant]
     Dosage: 325 MG, DAILY (1/D)
     Route: 048
  7. TYLENOL (CAPLET) [Concomitant]
     Dosage: UNK, AS NEEDED
  8. POTASSIUM CHLORIDE [Concomitant]
     Dosage: 10 MEQ, DAILY (1/D)
  9. LANTUS [Concomitant]
     Dosage: 70 U, EACH EVENING
  10. COREG [Concomitant]
     Dosage: 6.25 MG, 2/D
  11. LIPITOR [Concomitant]
     Dosage: 80 MG, DAILY (1/D)
     Route: 048
  12. ALDACTONE [Concomitant]
     Dosage: 25 MG, DAILY (1/D)
  13. NIACIN [Concomitant]
     Dosage: 500 MG, EACH EVENING
     Route: 048
  14. PREVACID [Concomitant]
     Dosage: 30 MG, DAILY (1/D)

REACTIONS (4)
  - CEREBROSPINAL FLUID RETENTION [None]
  - CONVULSION [None]
  - GLYCOSYLATED HAEMOGLOBIN INCREASED [None]
  - SUBDURAL HAEMATOMA [None]
